FAERS Safety Report 5448735-6 (Version None)
Quarter: 2007Q3

REPORT INFORMATION
  Report Type: 
  Country: None (occurrence: None)
  Receive Date: 20070911
  Receipt Date: 20070907
  Transmission Date: 20080115
  Serious: Yes (Life-Threatening, Hospitalization)
  Sender: FDA-Public Use
  Company Number: B0483060A

PATIENT
  Sex: Male
  Weight: 62 kg

DRUGS (5)
  1. ALKERAN [Suspect]
     Indication: MULTIPLE MYELOMA
     Route: 048
     Dates: start: 20070605
  2. ASPIRIN [Concomitant]
     Dosage: 100MG PER DAY
     Route: 048
  3. RABEPRAZOLE SODIUM [Concomitant]
     Dosage: 20MG PER DAY
     Route: 048
  4. FRANDOL S [Concomitant]
     Route: 062
  5. PREDNISOLONE [Concomitant]

REACTIONS (6)
  - ABDOMINAL PAIN UPPER [None]
  - ANGINA PECTORIS [None]
  - HEADACHE [None]
  - INTERSTITIAL LUNG DISEASE [None]
  - PYREXIA [None]
  - UPPER RESPIRATORY TRACT INFLAMMATION [None]
